FAERS Safety Report 23332141 (Version 3)
Quarter: 2024Q1

REPORT INFORMATION
  Report Type: Spontaneous
  Country: US (occurrence: US)
  Receive Date: 20231222
  Receipt Date: 20240222
  Transmission Date: 20240410
  Serious: No
  Sender: FDA-Public Use
  Company Number: US-BRISTOL-MYERS SQUIBB COMPANY-2023-186238

PATIENT
  Age: 76 Year
  Sex: Female
  Weight: 63.05 kg

DRUGS (2)
  1. REVLIMID [Suspect]
     Active Substance: LENALIDOMIDE
     Indication: Plasma cell myeloma
     Route: 048
     Dates: start: 20231028
  2. REVLIMID [Suspect]
     Active Substance: LENALIDOMIDE
     Dosage: FREQUENCY- DAILY FOR 21DAYS
     Route: 048

REACTIONS (4)
  - Fatigue [Unknown]
  - Urinary tract infection [Not Recovered/Not Resolved]
  - Abdominal distension [Unknown]
  - Joint swelling [Unknown]
